FAERS Safety Report 11587918 (Version 3)
Quarter: 2015Q4

REPORT INFORMATION
  Report Type: Spontaneous
  Country: US (occurrence: US)
  Receive Date: 20151001
  Receipt Date: 20151117
  Transmission Date: 20160304
  Serious: No
  Sender: FDA-Public Use
  Company Number: US-AMGEN-USASP2015100850

PATIENT
  Sex: Female

DRUGS (1)
  1. ENBREL [Suspect]
     Active Substance: ETANERCEPT
     Indication: ANKYLOSING SPONDYLITIS
     Dosage: 50MG ONCE A WEEK
     Route: 065
     Dates: start: 201503

REACTIONS (7)
  - Mobility decreased [Unknown]
  - Extra dose administered [Unknown]
  - Device malfunction [Unknown]
  - Injection site haemorrhage [Unknown]
  - Injection site pain [Unknown]
  - Lethargy [Unknown]
  - Arthralgia [Unknown]

NARRATIVE: CASE EVENT DATE: 2015
